FAERS Safety Report 7953524-4 (Version None)
Quarter: 2011Q4

REPORT INFORMATION
  Report Type: 
  Country: None (occurrence: None)
  Receive Date: 20111202
  Receipt Date: 20111128
  Transmission Date: 20120403
  Serious: Yes (Other)
  Sender: FDA-Public Use
  Company Number: US-ACCORD-011501

PATIENT
  Age: 8 Year
  Sex: Male

DRUGS (1)
  1. TACROLIMUS [Suspect]
     Indication: LIVER TRANSPLANT

REACTIONS (3)
  - EPSTEIN-BARR VIRUS INFECTION [None]
  - TRANSPLANT REJECTION [None]
  - ANAEMIA HAEMOLYTIC AUTOIMMUNE [None]
